FAERS Safety Report 24028477 (Version 1)
Quarter: 2024Q2

REPORT INFORMATION
  Report Type: Spontaneous
  Country: DE (occurrence: DE)
  Receive Date: 20240628
  Receipt Date: 20240628
  Transmission Date: 20240716
  Serious: Yes (Congenital Anomaly)
  Sender: FDA-Public Use
  Company Number: DE-EMBRYOTOX-202307987

PATIENT
  Age: 0 Year
  Sex: Female
  Weight: 3.94 kg

DRUGS (6)
  1. ESCITALOPRAM [Suspect]
     Active Substance: ESCITALOPRAM OXALATE
     Indication: Anxiety disorder
     Dosage: 20 [MG/DAY]/ INCREASED IN THE COURSE OF PREGNANCY FROM 15 TO 20 MG/DAY
     Route: 064
     Dates: start: 20230605, end: 20240227
  2. Rennie [Concomitant]
     Indication: Dyspepsia
     Dosage: NEEDED ALMOST DAILY
     Route: 064
  3. IBUPROFEN [Concomitant]
     Active Substance: IBUPROFEN
     Indication: Migraine
     Dosage: 400 [MG/D ]/ 200-400 MG/D 1-2X PER WEEK; AGAINST MIGRAINE AND HEADACHE
     Route: 064
  4. PROMETHAZINE [Concomitant]
     Active Substance: PROMETHAZINE HYDROCHLORIDE
     Indication: Panic attack
     Dosage: 25 [MG/DAY (IF REQUIRED)]/ 25 MG AS NEEDED, STARTED AT GW 28.4 FOR AT LEAST 3 WEEKS, STOPPED BECA...
     Route: 064
  5. Tavor [Concomitant]
     Indication: Anxiety disorder
     Dosage: 1 [MG/D ]/ SPORADICALLY, 0.5-1 MG TWICE A WEEK
     Route: 064
  6. ACETAMINOPHEN [Concomitant]
     Active Substance: ACETAMINOPHEN
     Indication: Headache
     Dosage: 1000 [MG/D (1-2X/WEEK)]/ 1000 MG/D 1-2X/WEEK
     Route: 064

REACTIONS (4)
  - Ventricular septal defect [Recovering/Resolving]
  - Foetal exposure during pregnancy [Unknown]
  - Atrial septal defect [Recovering/Resolving]
  - Mitral valve incompetence [Unknown]
